FAERS Safety Report 7474031-1 (Version None)
Quarter: 2011Q2

REPORT INFORMATION
  Report Type: 
  Country: None (occurrence: None)
  Receive Date: 20110511
  Receipt Date: 20110429
  Transmission Date: 20111010
  Serious: Yes (Other)
  Sender: FDA-Public Use
  Company Number: US-BAYER-2011-037510

PATIENT
  Age: 23 Month
  Sex: Male
  Weight: 12.4 kg

DRUGS (4)
  1. XYNTHA [Suspect]
     Indication: FACTOR VIII DEFICIENCY
     Dosage: 1150 IU, QD
     Route: 042
     Dates: start: 20110210, end: 20110210
  2. XYNTHA [Suspect]
     Dosage: 7 DOSES OF
     Route: 042
  3. CORTICOSTEROIDS [Suspect]
  4. KOGENATE FS [Suspect]
     Indication: FACTOR VIII DEFICIENCY
     Dosage: UNK
     Dates: start: 20110212

REACTIONS (4)
  - SWELLING FACE [None]
  - FACTOR VIII INHIBITION [None]
  - UNRESPONSIVE TO STIMULI [None]
  - URTICARIA [None]
